FAERS Safety Report 9910320 (Version 1)
Quarter: 2014Q1

REPORT INFORMATION
  Report Type: Spontaneous
  Country: JP (occurrence: JP)
  Receive Date: 20140219
  Receipt Date: 20140219
  Transmission Date: 20141002
  Serious: Yes (Hospitalization)
  Sender: FDA-Public Use
  Company Number: JP-SA-2014SA019534

PATIENT
  Age: 63 Year
  Sex: Male

DRUGS (3)
  1. GLIMEPIRIDE [Suspect]
     Indication: DIABETES MELLITUS
     Route: 048
     Dates: start: 20130628
  2. INSULIN [Concomitant]
     Indication: DIABETES MELLITUS
     Dates: start: 20130628
  3. LINAGLIPTIN [Concomitant]
     Indication: DIABETES MELLITUS
     Route: 048
     Dates: start: 20130628

REACTIONS (3)
  - Erythema multiforme [Recovered/Resolved]
  - Rash generalised [Recovered/Resolved]
  - Blister [Recovered/Resolved]
